FAERS Safety Report 18898187 (Version 1)
Quarter: 2021Q1

REPORT INFORMATION
  Report Type: Spontaneous
  Country: US (occurrence: US)
  Receive Date: 20210213
  Receipt Date: 20210213
  Transmission Date: 20210420
  Serious: Yes (Hospitalization)
  Sender: FDA-Public Use
  Company Number: None

PATIENT
  Age: 61 Year
  Sex: Male
  Weight: 106.9 kg

DRUGS (1)
  1. CISPLATIN. [Suspect]
     Active Substance: CISPLATIN
     Dates: end: 20210118

REACTIONS (7)
  - Diarrhoea [None]
  - Oropharyngeal pain [None]
  - Rales [None]
  - Pyrexia [None]
  - Odynophagia [None]
  - Constipation [None]
  - Sputum abnormal [None]

NARRATIVE: CASE EVENT DATE: 20210121
